FAERS Safety Report 5588596-8 (Version None)
Quarter: 2008Q1

REPORT INFORMATION
  Report Type: 
  Country: None (occurrence: None)
  Receive Date: 20080111
  Receipt Date: 20071231
  Transmission Date: 20080703
  Serious: Yes (Disabling, Other)
  Sender: FDA-Public Use
  Company Number: GB-PFIZER INC-2008000885

PATIENT
  Age: 19 Year
  Sex: Female

DRUGS (1)
  1. DOXYCYCLINE [Suspect]
     Indication: MALARIA PROPHYLAXIS

REACTIONS (8)
  - BLINDNESS [None]
  - HEADACHE [None]
  - INTRACRANIAL PRESSURE INCREASED [None]
  - OPTIC ATROPHY [None]
  - PAPILLOEDEMA [None]
  - RETINAL EXUDATES [None]
  - VISION BLURRED [None]
  - VOMITING [None]
